FAERS Safety Report 21999600 (Version 4)
Quarter: 2023Q1

REPORT INFORMATION
  Report Type: Report from Study
  Country: US (occurrence: US)
  Receive Date: 20230216
  Receipt Date: 20230309
  Transmission Date: 20230417
  Serious: No
  Sender: FDA-Public Use
  Company Number: US-002147023-NVSC2023US035521

PATIENT
  Age: 41 Year
  Sex: Male

DRUGS (1)
  1. MAYZENT [Suspect]
     Active Substance: SIPONIMOD
     Indication: Multiple sclerosis
     Dosage: 2 MG, QD
     Route: 048
     Dates: start: 20230211

REACTIONS (10)
  - Arthralgia [Unknown]
  - Musculoskeletal discomfort [Unknown]
  - Headache [Unknown]
  - Dizziness [Unknown]
  - Nausea [Unknown]
  - SARS-CoV-2 test positive [Unknown]
  - Asthenia [Unknown]
  - Influenza like illness [Recovering/Resolving]
  - Visual impairment [Unknown]
  - Pain [Unknown]

NARRATIVE: CASE EVENT DATE: 20230211
